FAERS Safety Report 6266932-7 (Version None)
Quarter: 2009Q3

REPORT INFORMATION
  Report Type: 
  Country: None (occurrence: None)
  Receive Date: 20090714
  Receipt Date: 20090709
  Transmission Date: 20100115
  Serious: Yes (Death)
  Sender: FDA-Public Use
  Company Number: US-ASTRAZENECA-2009UW19415

PATIENT
  Age: 51 Year
  Sex: Male
  Weight: 10 kg

DRUGS (6)
  1. SYMBICORT [Suspect]
     Route: 055
  2. ALVESCO [Suspect]
     Route: 055
  3. THEOPHYLLINE [Suspect]
  4. MAXAIR [Concomitant]
  5. ALBUTEROL [Concomitant]
  6. ACCOLATE [Concomitant]

REACTIONS (1)
  - MYOCARDIAL INFARCTION [None]
